FAERS Safety Report 7081161-5 (Version None)
Quarter: 2010Q4

REPORT INFORMATION
  Report Type: 
  Country: None (occurrence: None)
  Receive Date: 20101103
  Receipt Date: 20101025
  Transmission Date: 20110411
  Serious: Yes (Hospitalization)
  Sender: FDA-Public Use
  Company Number: B0682357A

PATIENT
  Sex: Female

DRUGS (1)
  1. ZINACEF [Suspect]
     Route: 042

REACTIONS (1)
  - CIRCULATORY COLLAPSE [None]
